FAERS Safety Report 10265105 (Version 1)
Quarter: 2014Q2

REPORT INFORMATION
  Report Type: Report from Study
  Country: US (occurrence: US)
  Receive Date: 20140627
  Receipt Date: 20140627
  Transmission Date: 20141212
  Serious: Yes (Other)
  Sender: FDA-Public Use
  Company Number: PHEH2014US012881

PATIENT
  Sex: Female
  Weight: 103.4 kg

DRUGS (1)
  1. GILENYA [Suspect]
     Indication: MULTIPLE SCLEROSIS
     Dosage: 0.5 MG, DAILY
     Route: 048

REACTIONS (6)
  - Central nervous system lesion [Unknown]
  - Muscular weakness [Unknown]
  - Gait disturbance [Unknown]
  - Sensory disturbance [Unknown]
  - Urinary incontinence [Unknown]
  - Feeling abnormal [Unknown]
